FAERS Safety Report 8479378-8 (Version None)
Quarter: 2012Q2

REPORT INFORMATION
  Report Type: 
  Country: None (occurrence: None)
  Receive Date: 20120629
  Receipt Date: 20120625
  Transmission Date: 20120825
  Serious: Yes (Hospitalization)
  Sender: FDA-Public Use
  Company Number: US-TEVA-345366USA

PATIENT
  Sex: Female
  Weight: 77 kg

DRUGS (22)
  1. OXYCODONE HCL [Concomitant]
     Dates: start: 20060113
  2. METOPROLOL SUCCINATE [Concomitant]
     Dates: start: 20120616
  3. POTASSIUM CHLORIDE [Concomitant]
     Dates: start: 20060611
  4. AMITRIPTYLINE HCL [Concomitant]
     Dates: start: 20060113
  5. WARFARIN SODIUM [Concomitant]
     Dates: start: 20120523
  6. SENOKOT [Concomitant]
     Dates: start: 20061024
  7. DEXAMETHASONE [Suspect]
     Dates: start: 20120525
  8. DULOXETIME HYDROCHLORIDE [Concomitant]
     Dates: start: 20111213
  9. VITACAL                            /01535001/ [Concomitant]
     Dates: start: 20120525
  10. TREANDA [Suspect]
     Indication: MULTIPLE MYELOMA
     Dosage: DAYS 1-2
     Route: 042
     Dates: start: 20120525, end: 20120526
  11. ZOLPIDEM TARTRATE [Concomitant]
     Dates: start: 20060711
  12. OXYCODONE HYDROCHLORIDE [Concomitant]
     Dates: start: 20061024
  13. OMEPRAZOLE [Concomitant]
     Dates: start: 20060113
  14. FUROSEMIDE [Concomitant]
     Dates: start: 20060713
  15. CALCIUM ACETATE [Concomitant]
     Dates: start: 20120525
  16. ALLOPURINOL [Concomitant]
     Dates: start: 20120523
  17. PAMIDRONATE DISODIUM [Concomitant]
     Dates: start: 20120523
  18. ACETYLSALICYLIC ACID SRT [Concomitant]
     Dates: start: 20120217
  19. ACYCLOVIR [Concomitant]
     Dates: start: 20060611
  20. BACTRIM [Concomitant]
     Dates: start: 20110928
  21. LENALIDOMIDE [Suspect]
     Dates: start: 20120525
  22. PHENOXYMETHYL PENICILLIN [Concomitant]
     Dates: start: 20120125

REACTIONS (1)
  - DIARRHOEA [None]
